FAERS Safety Report 12285575 (Version 1)
Quarter: 2016Q2

REPORT INFORMATION
  Report Type: Spontaneous
  Country: US (occurrence: None)
  Receive Date: 20160419
  Receipt Date: 20160419
  Transmission Date: 20160815
  Serious: Yes (Other)
  Sender: FDA-Public Use
  Company Number: None

PATIENT
  Age: 60 Year
  Sex: Female
  Weight: 83.92 kg

DRUGS (28)
  1. VITAMIN E [Concomitant]
     Active Substance: .ALPHA.-TOCOPHEROL
  2. CALCIUM [Concomitant]
     Active Substance: CALCIUM
  3. AMLODIPINE [Concomitant]
     Active Substance: AMLODIPINE BESYLATE
  4. LORAZEPAM. [Concomitant]
     Active Substance: LORAZEPAM
  5. VITAMIN D [Concomitant]
     Active Substance: CHOLECALCIFEROL
  6. OLANZAPINE. [Concomitant]
     Active Substance: OLANZAPINE
  7. MYRBETRIQ [Concomitant]
     Active Substance: MIRABEGRON
  8. AZLASTINE [Concomitant]
  9. IMODIUM [Concomitant]
     Active Substance: LOPERAMIDE HYDROCHLORIDE
  10. FORTEO [Concomitant]
     Active Substance: TERIPARATIDE
  11. ONDANSETRON [Concomitant]
     Active Substance: ONDANSETRON
  12. VIT B COMPLEX [Concomitant]
  13. MAGNESIUM OXIDE. [Concomitant]
     Active Substance: MAGNESIUM OXIDE
  14. LOSARTAN. [Concomitant]
     Active Substance: LOSARTAN
  15. VITAMIN C [Concomitant]
     Active Substance: ASCORBIC ACID
  16. CLONAZEPAM. [Concomitant]
     Active Substance: CLONAZEPAM
  17. VIIBRYD [Concomitant]
     Active Substance: VILAZODONE HYDROCHLORIDE
  18. NEXIUM [Concomitant]
     Active Substance: ESOMEPRAZOLE MAGNESIUM
  19. PRENATAL VITS [Concomitant]
  20. VITAMIN D3 [Concomitant]
     Active Substance: CHOLECALCIFEROL
  21. FOSAMAX [Suspect]
     Active Substance: ALENDRONATE SODIUM
     Indication: OSTEOPOROSIS
     Dosage: 70 MGS 1 PILLS DAILY MOUTH
     Route: 048
     Dates: start: 20150113
  22. VITAMIN B12 [Concomitant]
     Active Substance: CYANOCOBALAMIN
  23. FOLIC ACID. [Concomitant]
     Active Substance: FOLIC ACID
  24. FERROUS SULFATE. [Concomitant]
     Active Substance: FERROUS SULFATE
  25. NYSTATIN. [Concomitant]
     Active Substance: NYSTATIN
  26. MUCIPROCINE [Concomitant]
  27. BACLOFEN. [Concomitant]
     Active Substance: BACLOFEN
  28. ZINC [Concomitant]
     Active Substance: ZINC\ZINC CHLORIDE

REACTIONS (1)
  - Tooth fracture [None]

NARRATIVE: CASE EVENT DATE: 201510
